FAERS Safety Report 8906450 (Version 1)
Quarter: 2012Q4

REPORT INFORMATION
  Report Type: Spontaneous
  Country: FR (occurrence: None)
  Receive Date: 20121107
  Receipt Date: 20121107
  Transmission Date: 20130627
  Serious: Yes (Other)
  Sender: FDA-Public Use
  Company Number: DSM-2012-00822

PATIENT
  Age: 59 Year
  Sex: Male
  Weight: 82 kg

DRUGS (1)
  1. ATLEIS DUO [Suspect]
     Indication: HYPERTENSION ARTERIAL
     Route: 048
     Dates: start: 20120420, end: 20120512

REACTIONS (3)
  - Pyelonephritis [None]
  - Hypotension [None]
  - Escherichia test positive [None]
